FAERS Safety Report 16277416 (Version 1)
Quarter: 2019Q2

REPORT INFORMATION
  Report Type: Spontaneous
  Country: DK (occurrence: DK)
  Receive Date: 20190506
  Receipt Date: 20190506
  Transmission Date: 20190711
  Serious: Yes (Life-Threatening, Hospitalization)
  Sender: FDA-Public Use
  Company Number: DK-ASTRAZENECA-2019SE68048

PATIENT
  Sex: Male
  Weight: 90 kg

DRUGS (2)
  1. FORXIGA [Suspect]
     Active Substance: DAPAGLIFLOZIN
     Indication: TYPE 2 DIABETES MELLITUS
     Route: 048
     Dates: start: 20180327
  2. JANUVIA [Concomitant]
     Active Substance: SITAGLIPTIN PHOSPHATE
     Indication: TYPE 2 DIABETES MELLITUS
     Dosage: STYRKE: 100 MG
     Route: 048
     Dates: start: 20160620

REACTIONS (2)
  - Urosepsis [Recovering/Resolving]
  - Klebsiella sepsis [Recovering/Resolving]

NARRATIVE: CASE EVENT DATE: 20190415
